FAERS Safety Report 22315297 (Version 1)
Quarter: 2023Q2

REPORT INFORMATION
  Report Type: Spontaneous
  Country: US (occurrence: None)
  Receive Date: 20230511
  Receipt Date: 20230511
  Transmission Date: 20230721
  Serious: No
  Sender: FDA-Public Use
  Company Number: None

PATIENT
  Sex: Female

DRUGS (1)
  1. REMODULIN [Suspect]
     Active Substance: TREPROSTINIL
     Indication: Pulmonary arterial hypertension
     Dosage: OTHER QUANTITY : 25NG/KG/MIN;?OTHER FREQUENCY : CONTINOUS;?
     Route: 042
     Dates: start: 202304

REACTIONS (5)
  - Fluid retention [None]
  - Dyspnoea [None]
  - Pain in extremity [None]
  - Pain in extremity [None]
  - Device leakage [None]
